FAERS Safety Report 9223505 (Version 8)
Quarter: 2014Q2

REPORT INFORMATION
  Report Type: Report from Study
  Country: US (occurrence: US)
  Receive Date: 20130410
  Receipt Date: 20140630
  Transmission Date: 20141212
  Serious: Yes (Death, Hospitalization)
  Sender: FDA-Public Use
  Company Number: US-ACTELION-A-US2013-77881

PATIENT
  Age: 73 Year
  Sex: Female

DRUGS (5)
  1. VENTAVIS [Suspect]
     Indication: PULMONARY ARTERIAL HYPERTENSION
     Dosage: 5 MCG, 4-9XDAY
     Route: 055
     Dates: start: 20070516
  2. TRACLEER [Suspect]
     Indication: PULMONARY ARTERIAL HYPERTENSION
     Dosage: UNK
     Route: 048
     Dates: end: 20140622
  3. ADCIRCA [Concomitant]
  4. PLAVIX [Concomitant]
  5. PLETAL [Concomitant]

REACTIONS (7)
  - Cardiac failure [Fatal]
  - Heart rate irregular [Recovering/Resolving]
  - Dyspnoea [Unknown]
  - Cardiac failure congestive [Recovering/Resolving]
  - Fluid retention [Unknown]
  - Chronic obstructive pulmonary disease [Recovering/Resolving]
  - Cough [Unknown]
